FAERS Safety Report 6425884-7 (Version None)
Quarter: 2009Q4

REPORT INFORMATION
  Report Type: 
  Country: None (occurrence: None)
  Receive Date: 20091029
  Receipt Date: 20091016
  Transmission Date: 20100525
  Serious: Yes (Hospitalization, Other)
  Sender: FDA-Public Use
  Company Number: 2009US003834

PATIENT
  Age: 12 Year
  Sex: Male

DRUGS (3)
  1. PROGRAF [Suspect]
     Indication: RENAL TRANSPLANT
  2. MYCOPHENOLATE MOFETIL [Suspect]
     Indication: RENAL TRANSPLANT
  3. DACLIZUMAB (DACLIZUMAB) [Concomitant]

REACTIONS (11)
  - ALOPECIA [None]
  - BODY TINEA [None]
  - CUSHINGOID [None]
  - DIABETES MELLITUS INADEQUATE CONTROL [None]
  - DIVORCED PARENTS [None]
  - DRUG LEVEL FLUCTUATING [None]
  - DRUG TOXICITY [None]
  - EDUCATIONAL PROBLEM [None]
  - GLUCOSE TOLERANCE IMPAIRED [None]
  - MALIGNANT HYPERTENSION [None]
  - ORAL CANDIDIASIS [None]
